FAERS Safety Report 5787407-5 (Version None)
Quarter: 2008Q2

REPORT INFORMATION
  Report Type: 
  Country: None (occurrence: None)
  Receive Date: 20080623
  Receipt Date: 20080623
  Transmission Date: 20081010
  Serious: Yes (Hospitalization)
  Sender: FDA-Public Use
  Company Number: None

PATIENT
  Age: 58 Year
  Sex: Male
  Weight: 80.7 kg

DRUGS (19)
  1. VANCOMYCIN [Suspect]
     Indication: FEBRILE NEUTROPENIA
     Dosage: 1250 MG Q12H IV BOLUS
     Route: 040
     Dates: start: 20071204, end: 20071207
  2. ZOSYN [Suspect]
     Indication: FEBRILE NEUTROPENIA
     Dosage: 4.5 GM Q6H IV BOLUS
     Route: 040
     Dates: start: 20071204, end: 20071207
  3. ALBUTEROL SULFATE AND IPRATROPIUM BROMIDE [Concomitant]
  4. ALLOPURINOL [Concomitant]
  5. AMBISOME [Concomitant]
  6. CEFEPIME [Concomitant]
  7. DAPSONE [Concomitant]
  8. DAPTOMYCIN [Concomitant]
  9. FAMCICLOVIR [Concomitant]
  10. LEVOFLOXACIN [Concomitant]
  11. MEROPENEM [Concomitant]
  12. METRONIDAZOLE HCL [Concomitant]
  13. MICAFUNGIN [Concomitant]
  14. PAROXETINE HCL [Concomitant]
  15. PIPERACILLIN AND TAZOBACTAM [Concomitant]
  16. POSACONAZOLE [Concomitant]
  17. PREDNISONE 50MG TAB [Concomitant]
  18. VANCOMYCIN [Concomitant]
  19. VORICONAZOLE [Concomitant]

REACTIONS (1)
  - NEPHROPATHY TOXIC [None]
